FAERS Safety Report 5711268-3 (Version None)
Quarter: 2008Q2

REPORT INFORMATION
  Report Type: 
  Country: None (occurrence: None)
  Receive Date: 20080418
  Receipt Date: 20080407
  Transmission Date: 20081010
  Serious: Yes (Other)
  Sender: FDA-Public Use
  Company Number: 18936

PATIENT
  Age: 62 Year
  Sex: Female

DRUGS (5)
  1. VINCRISTINE [Suspect]
     Indication: NON-HODGKIN'S LYMPHOMA
  2. ADRIAMYCIN PFS [Suspect]
     Indication: NON-HODGKIN'S LYMPHOMA
  3. CYCLOPHOSPHAMIDE [Suspect]
     Indication: NON-HODGKIN'S LYMPHOMA
  4. PREDNISOLONE [Suspect]
     Indication: NON-HODGKIN'S LYMPHOMA
  5. RITUXIMAB [Suspect]
     Indication: NON-HODGKIN'S LYMPHOMA

REACTIONS (2)
  - PULMONARY TOXICITY [None]
  - THERAPEUTIC AGENT TOXICITY [None]
